FAERS Safety Report 23430987 (Version 2)
Quarter: 2024Q2

REPORT INFORMATION
  Report Type: Other
  Country: CA (occurrence: CA)
  Receive Date: 20240123
  Receipt Date: 20240528
  Transmission Date: 20240715
  Serious: Yes (Other)
  Sender: FDA-Public Use
  Company Number: CA-APOTEX-2024AP001204

PATIENT
  Age: 48 Year
  Sex: Female

DRUGS (2)
  1. DIPHENHYDRAMINE [Suspect]
     Active Substance: DIPHENHYDRAMINE
     Indication: Product used for unknown indication
     Dosage: UNK
     Route: 065
  2. OCRELIZUMAB [Suspect]
     Active Substance: OCRELIZUMAB
     Indication: Relapsing-remitting multiple sclerosis
     Dosage: 300 MILLIGRAM, Q.O.WK. (1 EVERY 14 DAYS)
     Route: 042

REACTIONS (13)
  - Asthenia [Not Recovered/Not Resolved]
  - Hypersomnia [Not Recovered/Not Resolved]
  - Hypothyroidism [Not Recovered/Not Resolved]
  - Vein disorder [Not Recovered/Not Resolved]
  - Anxiety [Not Recovered/Not Resolved]
  - Infusion related reaction [Not Recovered/Not Resolved]
  - Poor venous access [Not Recovered/Not Resolved]
  - Hypoaesthesia [Not Recovered/Not Resolved]
  - Pruritus [Not Recovered/Not Resolved]
  - Hypersensitivity [Not Recovered/Not Resolved]
  - Dizziness [Not Recovered/Not Resolved]
  - Fatigue [Not Recovered/Not Resolved]
  - Therapeutic response shortened [Not Recovered/Not Resolved]
